FAERS Safety Report 21946639 (Version 2)
Quarter: 2023Q1

REPORT INFORMATION
  Report Type: Report from Study
  Country: CA (occurrence: CA)
  Receive Date: 20230202
  Receipt Date: 20230328
  Transmission Date: 20230418
  Serious: Yes (Hospitalization, Other)
  Sender: FDA-Public Use
  Company Number: CA-KOREA IPSEN Pharma-2022-34438

PATIENT
  Age: 78 Year
  Sex: Female

DRUGS (10)
  1. LANREOTIDE ACETATE [Suspect]
     Active Substance: LANREOTIDE ACETATE
     Indication: Carcinoid syndrome
     Route: 058
     Dates: start: 20221121
  2. LANREOTIDE ACETATE [Suspect]
     Active Substance: LANREOTIDE ACETATE
     Indication: Neuroendocrine tumour
  3. JANUMET [Concomitant]
     Active Substance: METFORMIN HYDROCHLORIDE\SITAGLIPTIN PHOSPHATE
     Dosage: 500 MG/ 50 MG
  4. JARDIANCE [Concomitant]
     Active Substance: EMPAGLIFLOZIN
  5. CELECOXIB [Concomitant]
     Active Substance: CELECOXIB
  6. PERINDOPRIL [Concomitant]
     Active Substance: PERINDOPRIL
  7. ASPIRIN [Concomitant]
     Active Substance: ASPIRIN
  8. ROSUVASTATIN [Concomitant]
     Active Substance: ROSUVASTATIN
  9. ESCITALOPRAM [Concomitant]
     Active Substance: ESCITALOPRAM OXALATE
  10. CLONAZEPAM [Concomitant]
     Active Substance: CLONAZEPAM

REACTIONS (10)
  - Hospitalisation [Recovered/Resolved]
  - Atrial fibrillation [Recovered/Resolved]
  - Palpitations [Recovered/Resolved]
  - Productive cough [Recovered/Resolved]
  - Drug hypersensitivity [Unknown]
  - Peripheral swelling [Unknown]
  - Lip swelling [Unknown]
  - Dizziness [Unknown]
  - Burning sensation [Unknown]
  - Off label use [Unknown]

NARRATIVE: CASE EVENT DATE: 20221214
